FAERS Safety Report 6272947-5 (Version None)
Quarter: 2009Q3

REPORT INFORMATION
  Report Type: 
  Country: None (occurrence: None)
  Receive Date: 20090720
  Receipt Date: 20090709
  Transmission Date: 20100115
  Serious: Yes (Other)
  Sender: FDA-Public Use
  Company Number: US-BIOGENIDEC-2007BI006622

PATIENT
  Age: 64 Year
  Sex: Male
  Weight: 90 kg

DRUGS (29)
  1. TYSABRI [Suspect]
     Indication: MULTIPLE SCLEROSIS
     Route: 042
     Dates: start: 20070110, end: 20070207
  2. WELLBUTRIN XL [Concomitant]
  3. ARICEPT [Concomitant]
  4. NAMENDA [Concomitant]
  5. CRESTOR [Concomitant]
  6. SINGULAIR [Concomitant]
  7. ALLEGRA D 24 HOUR [Concomitant]
  8. PATANOL [Concomitant]
  9. CIALIS [Concomitant]
  10. CAVERJECT [Concomitant]
  11. ALLERGY SHOTS [Concomitant]
  12. AFRIN [Concomitant]
  13. ADVIL [Concomitant]
  14. MUCINEX [Concomitant]
  15. TYLENOL (CAPLET) [Concomitant]
  16. POLICOSANOL [Concomitant]
  17. GUGGUL [Concomitant]
  18. FISH OIL [Concomitant]
  19. COENZYME Q10 [Concomitant]
  20. PROSTATE SUPPLEMENT [Concomitant]
  21. N-ACETYLCYSTEINE [Concomitant]
  22. TURMERIC [Concomitant]
  23. QUERCITIN [Concomitant]
  24. BROMELAIN [Concomitant]
  25. CLARINEX [Concomitant]
  26. ADVAIR DISKUS 100/50 [Concomitant]
  27. ULTRAM [Concomitant]
  28. PREVACID [Concomitant]
  29. RITUXAN [Concomitant]

REACTIONS (1)
  - NON-HODGKIN'S LYMPHOMA STAGE III [None]
